FAERS Safety Report 14664051 (Version 1)
Quarter: 2018Q1

REPORT INFORMATION
  Report Type: Spontaneous
  Country: US (occurrence: US)
  Receive Date: 20180321
  Receipt Date: 20180321
  Transmission Date: 20180509
  Serious: No
  Sender: FDA-Public Use
  Company Number: US-AAA-201700093

PATIENT
  Age: 60 Year
  Sex: Male
  Weight: 108 kg

DRUGS (2)
  1. NETSPOT [Suspect]
     Active Substance: DOTATATE GALLIUM GA-68
     Indication: POSITRON EMISSION TOMOGRAM
     Dosage: NUMBER OF SEPARATE DOSAGES: 1
     Route: 042
     Dates: start: 20170321, end: 20170321
  2. NETSPOT [Suspect]
     Active Substance: DOTATATE GALLIUM GA-68
     Indication: POSITRON EMISSION TOMOGRAM
     Dosage: UNSPECIFIED DOSAGE
     Route: 065
     Dates: start: 20170417, end: 20170417

REACTIONS (3)
  - Product quality issue [None]
  - Scan gallium abnormal [Recovered/Resolved]
  - Therapy non-responder [None]

NARRATIVE: CASE EVENT DATE: 20170321
